FAERS Safety Report 7190181-1 (Version None)
Quarter: 2010Q4

REPORT INFORMATION
  Report Type: 
  Country: None (occurrence: None)
  Receive Date: 20101223
  Receipt Date: 20101215
  Transmission Date: 20110411
  Serious: Yes (Other)
  Sender: FDA-Public Use
  Company Number: US-PERRIGO-10US014214

PATIENT
  Sex: Male
  Weight: 15.873 kg

DRUGS (3)
  1. CHILDREN'S IBUPROFEN [Suspect]
     Indication: BODY TEMPERATURE INCREASED
     Dosage: 7.5 ML, SINGLE
     Route: 048
     Dates: start: 20101006, end: 20101006
  2. CHILDREN'S IBUPROFEN [Suspect]
     Indication: PROPHYLAXIS
     Dosage: 7.5 ML, SINGLE
     Route: 048
     Dates: start: 20101022, end: 20101022
  3. VACCINES [Concomitant]
     Indication: PROPHYLAXIS
     Dosage: UNK
     Route: 065
     Dates: start: 20101022, end: 20101022

REACTIONS (6)
  - CONJUNCTIVITIS [None]
  - ERYTHEMA OF EYELID [None]
  - EYELID DISORDER [None]
  - EYELID OEDEMA [None]
  - HYPERSENSITIVITY [None]
  - SCLERAL DISORDER [None]
